FAERS Safety Report 20900430 (Version 2)
Quarter: 2022Q2

REPORT INFORMATION
  Report Type: Spontaneous
  Country: FR (occurrence: FR)
  Receive Date: 20220601
  Receipt Date: 20220616
  Transmission Date: 20220720
  Serious: Yes (Hospitalization)
  Sender: FDA-Public Use
  Company Number: FR-BRISTOL-MYERS SQUIBB COMPANY-2022-038181

PATIENT
  Age: 82 Year
  Sex: Female
  Weight: 39 kg

DRUGS (5)
  1. DEXAMETHASONE [Suspect]
     Active Substance: DEXAMETHASONE
     Indication: Product used for unknown indication
     Dosage: 20 MILLIGRAM
  2. DEXAMETHASONE [Suspect]
     Active Substance: DEXAMETHASONE
     Dosage: 20 MILLIGRAM
     Dates: start: 202108
  3. LENALIDOMIDE [Suspect]
     Active Substance: LENALIDOMIDE
     Indication: Plasma cell myeloma
     Dosage: UNK, DOSE AND FRQUENCY: UNAVAILABLE
     Dates: start: 202108
  4. DARATUMUMAB [Suspect]
     Active Substance: DARATUMUMAB
     Indication: Product used for unknown indication
     Dosage: UNK
  5. DARATUMUMAB [Suspect]
     Active Substance: DARATUMUMAB
     Dosage: UNK, MONTHLY
     Dates: start: 202108

REACTIONS (3)
  - Weight decreased [Unknown]
  - Product use issue [Unknown]
  - Intentional product use issue [Unknown]
